FAERS Safety Report 5703723-7 (Version None)
Quarter: 2008Q2

REPORT INFORMATION
  Report Type: 
  Country: None (occurrence: None)
  Receive Date: 20080413
  Receipt Date: 20080403
  Transmission Date: 20081010
  Serious: Yes (Hospitalization, Other)
  Sender: FDA-Public Use
  Company Number: PHHY2008IT04597

PATIENT
  Age: 74 Year
  Sex: Male

DRUGS (3)
  1. ZOMETA [Suspect]
     Indication: MULTIPLE MYELOMA
     Dosage: 4 MG, QMO
     Dates: start: 20041201, end: 20050701
  2. MELPHALAN [Concomitant]
  3. DELTACORTENE [Concomitant]

REACTIONS (4)
  - COMPUTERISED TOMOGRAM ABNORMAL [None]
  - DENTAL OPERATION [None]
  - OSTEOMYELITIS [None]
  - X-RAY DENTAL [None]
